FAERS Safety Report 4304249-8 (Version None)
Quarter: 2004Q1

REPORT INFORMATION
  Report Type: 
  Country: None (occurrence: None)
  Receive Date: 20040225
  Receipt Date: 20040213
  Transmission Date: 20041129
  Serious: Yes (Hospitalization)
  Sender: FDA-Public Use
  Company Number: WAES 0402AUS00134

PATIENT
  Age: 66 Year
  Sex: Female
  Weight: 92 kg

DRUGS (6)
  1. ASPIRIN [Concomitant]
     Indication: CARDIAC FAILURE CONGESTIVE
     Route: 048
  2. CAPTOPRIL [Suspect]
     Indication: CARDIAC FAILURE CONGESTIVE
     Route: 048
     Dates: end: 20020819
  3. METOPROLOL TARTRATE [Concomitant]
     Indication: CARDIAC FAILURE CONGESTIVE
  4. NIFEDIPINE [Suspect]
     Indication: MYOCARDIAL ISCHAEMIA
     Route: 048
     Dates: end: 20020820
  5. PANTOPRAZOLE SODIUM [Concomitant]
  6. ZOCOR [Suspect]
     Route: 048
     Dates: start: 19990101, end: 20020819

REACTIONS (4)
  - ANAEMIA [None]
  - MYALGIA [None]
  - RENAL FAILURE ACUTE [None]
  - RHABDOMYOLYSIS [None]
